FAERS Safety Report 6538644-3 (Version None)
Quarter: 2010Q1

REPORT INFORMATION
  Report Type: 
  Country: None (occurrence: None)
  Receive Date: 20100115
  Receipt Date: 20100107
  Transmission Date: 20100710
  Serious: Yes (Hospitalization)
  Sender: FDA-Public Use
  Company Number: US-BIOGENIDEC-2009BI040459

PATIENT
  Age: 35 Year
  Sex: Female
  Weight: 87 kg

DRUGS (1)
  1. TYSABRI [Suspect]
     Indication: MULTIPLE SCLEROSIS
     Route: 042
     Dates: start: 20080912, end: 20091217

REACTIONS (6)
  - BLOOD CREATININE INCREASED [None]
  - BRONCHITIS [None]
  - DEHYDRATION [None]
  - HYPERTENSION [None]
  - HYPOTENSION [None]
  - RENAL FAILURE [None]
